FAERS Safety Report 7349024-5 (Version None)
Quarter: 2011Q1

REPORT INFORMATION
  Report Type: 
  Country: None (occurrence: None)
  Receive Date: 20110314
  Receipt Date: 20110307
  Transmission Date: 20110831
  Serious: Yes (Other)
  Sender: FDA-Public Use
  Company Number: TR-US-EMD SERONO, INC.-7045519

PATIENT
  Sex: Female
  Weight: 85 kg

DRUGS (2)
  1. REBIF [Suspect]
     Indication: MULTIPLE SCLEROSIS
     Route: 058
     Dates: start: 20100301, end: 20100701
  2. SERTRALINE HYDROCHLORIDE [Concomitant]
     Indication: DEPRESSION

REACTIONS (7)
  - LOSS OF CONSCIOUSNESS [None]
  - MYDRIASIS [None]
  - TREMOR [None]
  - FEELING COLD [None]
  - INAPPROPRIATE SCHEDULE OF DRUG ADMINISTRATION [None]
  - URINARY INCONTINENCE [None]
  - PYREXIA [None]
